FAERS Safety Report 18258374 (Version 1)
Quarter: 2020Q3

REPORT INFORMATION
  Report Type: Other
  Country: US (occurrence: US)
  Receive Date: 20200911
  Receipt Date: 20200911
  Transmission Date: 20201103
  Serious: Yes (Other)
  Sender: FDA-Public Use
  Company Number: US-ROCHE-2672999

PATIENT
  Sex: Male
  Weight: 29.9 kg

DRUGS (5)
  1. NUTROPIN [Suspect]
     Active Substance: SOMATROPIN
     Indication: SHORT STATURE
     Dosage: 0.8 AND 0.7 MG MG 6 TIMES A WEEK ;ONGOING: YES?NUSPIN 10 (0.1 MG DOSING INCREMENT)
     Route: 058
     Dates: start: 20200830
  2. NUTROPIN [Suspect]
     Active Substance: SOMATROPIN
  3. NUTROPIN [Suspect]
     Active Substance: SOMATROPIN
     Indication: HYPOPITUITARISM
  4. NUTROPIN [Suspect]
     Active Substance: SOMATROPIN
  5. ALBUTEROL HFA [Concomitant]
     Active Substance: ALBUTEROL SULFATE
     Dosage: INHALE 2 PUFFS BY MOUTH WITH SPACER AS NEEDED

REACTIONS (2)
  - Hearing aid user [Unknown]
  - Pain in extremity [Unknown]
